FAERS Safety Report 16145744 (Version 1)
Quarter: 2019Q2

REPORT INFORMATION
  Report Type: Spontaneous
  Country: US (occurrence: US)
  Receive Date: 20190401
  Receipt Date: 20190401
  Transmission Date: 20190711
  Serious: No
  Sender: FDA-Public Use
  Company Number: None

PATIENT
  Age: 38 Year
  Sex: Male
  Weight: 148.05 kg

DRUGS (5)
  1. XANAX XR [Concomitant]
     Active Substance: ALPRAZOLAM
  2. CLA [Concomitant]
  3. LOSARTAN/HCTZ [Suspect]
     Active Substance: HYDROCHLOROTHIAZIDE\LOSARTAN
     Indication: FLUID RETENTION
     Dosage: ?          QUANTITY:30 TABLET(S);?
     Route: 048
     Dates: start: 20190314, end: 20190314
  4. LOSARTAN/HCTZ [Suspect]
     Active Substance: HYDROCHLOROTHIAZIDE\LOSARTAN
     Indication: HYPERTENSION
     Dosage: ?          QUANTITY:30 TABLET(S);?
     Route: 048
     Dates: start: 20190314, end: 20190314
  5. PHENTERMINE. [Concomitant]
     Active Substance: PHENTERMINE

REACTIONS (3)
  - Hypertension [None]
  - Hepatic pain [None]
  - Peripheral swelling [None]

NARRATIVE: CASE EVENT DATE: 20190314
